FAERS Safety Report 9665138 (Version 1)
Quarter: 2013Q4

REPORT INFORMATION
  Report Type: Spontaneous
  Country: DK (occurrence: FR)
  Receive Date: 20131101
  Receipt Date: 20131101
  Transmission Date: 20140711
  Serious: Yes (Death)
  Sender: FDA-Public Use
  Company Number: FR-FRI-1000050705

PATIENT
  Age: 83 Year
  Sex: Male

DRUGS (3)
  1. CITALOPRAM [Suspect]
     Route: 048
  2. XARELTO [Suspect]
     Indication: ATRIAL FIBRILLATION
     Dosage: 1 DF
     Route: 048
     Dates: start: 201306, end: 20131007
  3. APROVEL [Concomitant]

REACTIONS (1)
  - Haemorrhagic stroke [Fatal]
